FAERS Safety Report 12624235 (Version 1)
Quarter: 2016Q3

REPORT INFORMATION
  Report Type: Spontaneous
  Country: CN (occurrence: CN)
  Receive Date: 20160805
  Receipt Date: 20160805
  Transmission Date: 20161109
  Serious: Yes (Other)
  Sender: FDA-Public Use
  Company Number: CN-JNJFOC-20160722879

PATIENT

DRUGS (3)
  1. IBUPROFEN. [Suspect]
     Active Substance: IBUPROFEN
     Indication: IRIDOCYCLITIS
     Dosage: 7 DAY/CYCLE
     Route: 048
  2. IBUPROFEN. [Suspect]
     Active Substance: IBUPROFEN
     Route: 048
  3. GENTAMICIN SULFATE. [Suspect]
     Active Substance: GENTAMICIN SULFATE
     Indication: IRIDOCYCLITIS
     Dosage: DOSE: 0.25 G/L
     Route: 047

REACTIONS (6)
  - Corneal opacity [Unknown]
  - Cataract [Unknown]
  - Eye infection [Unknown]
  - Off label use [Unknown]
  - Glaucoma [Unknown]
  - Product use issue [Unknown]
